FAERS Safety Report 4603875-6 (Version None)
Quarter: 2005Q1

REPORT INFORMATION
  Report Type: 
  Country: None (occurrence: None)
  Receive Date: 20050308
  Receipt Date: 20050308
  Transmission Date: 20050727
  Serious: Yes (Life-Threatening, Hospitalization)
  Sender: FDA-Public Use
  Company Number: None

PATIENT
  Age: 63 Year
  Sex: Male
  Weight: 87.5442 kg

DRUGS (19)
  1. TOPAMAX [Suspect]
     Indication: TOURETTE'S DISORDER
     Dosage: 25         3      ORAL
     Route: 048
     Dates: start: 20020101, end: 20050215
  2. PROVIGIL [Concomitant]
  3. STRATTERA [Concomitant]
  4. BEXTRA [Concomitant]
  5. AMBIEN [Concomitant]
  6. ANDROGEL [Concomitant]
  7. ENTERIC ASPIRIN [Concomitant]
  8. FOSAMAX [Concomitant]
  9. NASACORT [Concomitant]
  10. PROVENTIL [Concomitant]
  11. AFRIN [Concomitant]
  12. SEREVENT [Concomitant]
  13. SINGULAIR [Concomitant]
  14. CIALIS [Concomitant]
  15. VITAMIN D [Concomitant]
  16. MULTI-VITAMIN [Concomitant]
  17. GLUCOSAMINE AND CHRONDROINTIN SULFATE [Concomitant]
  18. BIOTIN [Concomitant]
  19. FOLIC ACID [Concomitant]

REACTIONS (9)
  - BLOOD ELECTROLYTES DECREASED [None]
  - BLOOD PRESSURE INCREASED [None]
  - DEHYDRATION [None]
  - DIARRHOEA [None]
  - ELECTROCARDIOGRAM ABNORMAL [None]
  - FOOT FRACTURE [None]
  - HEART RATE INCREASED [None]
  - METABOLIC ACIDOSIS [None]
  - VOMITING [None]
